FAERS Safety Report 7223601-4 (Version None)
Quarter: 2011Q1

REPORT INFORMATION
  Report Type: 
  Country: None (occurrence: None)
  Receive Date: 20110112
  Receipt Date: 20100909
  Transmission Date: 20110831
  Serious: No
  Sender: FDA-Public Use
  Company Number: US-ALLERGAN-1011666US

PATIENT
  Age: 50 Year
  Sex: Female

DRUGS (3)
  1. RESTASIS [Suspect]
     Indication: PRODUCT USED FOR UNKNOWN INDICATION
     Dosage: 1 GTT, BID
     Dates: start: 20090901, end: 20100903
  2. FLONASE [Concomitant]
     Indication: HYPERSENSITIVITY
  3. ZYRTEC [Concomitant]
     Indication: HYPERSENSITIVITY

REACTIONS (1)
  - WHITE BLOOD CELL COUNT DECREASED [None]
